FAERS Safety Report 11684224 (Version 3)
Quarter: 2015Q4

REPORT INFORMATION
  Report Type: Spontaneous
  Country: NL (occurrence: NL)
  Receive Date: 20151029
  Receipt Date: 20151221
  Transmission Date: 20160304
  Serious: Yes (Hospitalization, Other)
  Sender: FDA-Public Use
  Company Number: NL-TEVA-602938ISR

PATIENT
  Age: 14 Year
  Sex: Female

DRUGS (3)
  1. SALBUTAMOL ACTAVIS 100MCG/DO, MA [Suspect]
     Active Substance: ALBUTEROL
     Indication: DYSPNOEA
     Dosage: 12 DOSAGE FORMS DAILY;
     Dates: start: 201309, end: 201312
  2. VITAMINE DIVISUN [Concomitant]
     Active Substance: CHOLECALCIFEROL
  3. FLIXOTIDE [Suspect]
     Active Substance: FLUTICASONE PROPIONATE
     Indication: DYSPNOEA
     Dates: start: 201309, end: 201312

REACTIONS (6)
  - Parkinson^s disease [Not Recovered/Not Resolved]
  - Weight decreased [Unknown]
  - Peripheral swelling [Not Recovered/Not Resolved]
  - Skin discolouration [Not Recovered/Not Resolved]
  - Autonomic nervous system imbalance [Not Recovered/Not Resolved]
  - Tremor [Not Recovered/Not Resolved]

NARRATIVE: CASE EVENT DATE: 201312
